FAERS Safety Report 9947765 (Version 1)
Quarter: 2014Q1

REPORT INFORMATION
  Report Type: Spontaneous
  Country: US (occurrence: None)
  Receive Date: 20140122
  Receipt Date: 20140122
  Transmission Date: 20141002
  Serious: No
  Sender: FDA-Public Use
  Company Number: AP356-00141-SPO-US

PATIENT
  Age: 49 Year
  Sex: Female
  Weight: 105 kg

DRUGS (1)
  1. BELVIQ (LORCASERIN HYDROCHLORIDE) [Suspect]
     Indication: WEIGHT CONTROL
     Dosage: 20 MG , 2 IN 1 D, ORAL  09SEP2013 UNTIL UNKNOWN THERAPY DATES
     Route: 048
     Dates: start: 20130909

REACTIONS (4)
  - Headache [None]
  - Fatigue [None]
  - Neck pain [None]
  - Insomnia [None]
